FAERS Safety Report 8129244-2 (Version None)
Quarter: 2012Q1

REPORT INFORMATION
  Report Type: 
  Country: None (occurrence: None)
  Receive Date: 20120210
  Receipt Date: 20111209
  Transmission Date: 20120608
  Serious: No
  Sender: FDA-Public Use
  Company Number: US-BRISTOL-MYERS SQUIBB COMPANY-16242083

PATIENT
  Age: 68 Year
  Sex: Female
  Weight: 80 kg

DRUGS (2)
  1. ABREVA [Concomitant]
  2. ORENCIA [Suspect]
     Indication: RHEUMATOID ARTHRITIS
     Dosage: SECOND INF RECEIVED ON 2DEC2011
     Route: 042
     Dates: start: 20111118

REACTIONS (9)
  - DIZZINESS [None]
  - EMOTIONAL DISORDER [None]
  - CONTUSION [None]
  - HAEMORRHAGE [None]
  - HYPERTENSION [None]
  - NERVOUSNESS [None]
  - THINKING ABNORMAL [None]
  - VISION BLURRED [None]
  - HEADACHE [None]
